FAERS Safety Report 8981737 (Version 1)
Quarter: 2012Q4

REPORT INFORMATION
  Report Type: 
  Country: DE (occurrence: DE)
  Receive Date: 20121223
  Receipt Date: 20121223
  Transmission Date: 20130627
  Serious: Yes (Other)
  Sender: FDA-Public Use
  Company Number: DE-009507513-1210DEU008847

PATIENT
  Age: 23 Year
  Sex: Female

DRUGS (2)
  1. IMPLANON [Suspect]
     Dosage: Implant 1 on her left arm
     Route: 058
     Dates: start: 2002
  2. IMPLANON [Suspect]
     Dosage: Implant 2 on her right arm
     Dates: start: 2005

REACTIONS (4)
  - Incorrect drug administration duration [Unknown]
  - Incorrect drug administration duration [Unknown]
  - Medical device complication [Unknown]
  - Drug administered at inappropriate site [Unknown]
